FAERS Safety Report 9144607 (Version 2)
Quarter: 2013Q3

REPORT INFORMATION
  Report Type: Spontaneous
  Country: US (occurrence: US)
  Receive Date: 20130306
  Receipt Date: 20130729
  Transmission Date: 20140515
  Serious: Yes (Hospitalization, Other)
  Sender: FDA-Public Use
  Company Number: US-009507513-1303USA001560

PATIENT
  Sex: Male
  Weight: 79.37 kg

DRUGS (4)
  1. ZETIA [Suspect]
     Indication: BLOOD CHOLESTEROL INCREASED
     Dosage: 10 MG, QD
     Route: 048
  2. LIPITOR [Suspect]
     Dosage: 20 MG, QD
     Dates: end: 201204
  3. VITAMINS (UNSPECIFIED) [Concomitant]
     Dosage: UNK
  4. OMEGA-3 MARINE TRIGLYCERIDES [Concomitant]
     Dosage: 1200 MG, UNK

REACTIONS (5)
  - Myocardial infarction [Unknown]
  - Coronary artery occlusion [Unknown]
  - Stent placement [Unknown]
  - Myocardial infarction [Unknown]
  - Coronary artery occlusion [Unknown]
